FAERS Safety Report 9919179 (Version 2)
Quarter: 2014Q1

REPORT INFORMATION
  Report Type: Report from Study
  Country: CA (occurrence: CA)
  Receive Date: 20140224
  Receipt Date: 20140224
  Transmission Date: 20141002
  Serious: Yes (Other)
  Sender: FDA-Public Use
  Company Number: CA-ROCHE-1296376

PATIENT
  Age: 53 Year
  Sex: Female

DRUGS (12)
  1. RITUXAN [Suspect]
     Indication: RHEUMATOID ARTHRITIS
     Dosage: DAY 1 AND DAY 15, LAST DOSE- 25/OCT/2013
     Route: 042
     Dates: start: 20131011
  2. ACETAMINOPHEN [Concomitant]
     Route: 048
     Dates: start: 20130412
  3. HYDROCORTISONE [Concomitant]
     Route: 042
     Dates: start: 20130412, end: 20130412
  4. DIPHENHYDRAMINE HCL [Concomitant]
     Route: 048
     Dates: start: 20131011
  5. METHYLPREDNISOLONE [Concomitant]
     Route: 042
     Dates: start: 20131011
  6. METHOTREXATE [Concomitant]
  7. PREDNISONE [Concomitant]
  8. PLAQUENIL [Concomitant]
  9. PANTOPRAZOLE [Concomitant]
  10. HYDROCHLOROTHIAZIDE [Concomitant]
  11. ALENDRONATE [Concomitant]
  12. EURO-FOLIC [Concomitant]

REACTIONS (3)
  - Breast mass [Not Recovered/Not Resolved]
  - Monocyte count increased [Not Recovered/Not Resolved]
  - Blood potassium decreased [Not Recovered/Not Resolved]
